FAERS Safety Report 5223840-8 (Version None)
Quarter: 2007Q1

REPORT INFORMATION
  Report Type: 
  Country: None (occurrence: None)
  Receive Date: 20070125
  Receipt Date: 20070115
  Transmission Date: 20070707
  Serious: Yes (Hospitalization, Other)
  Sender: FDA-Public Use
  Company Number: FRWYE199017JAN07

PATIENT
  Age: 28 Year
  Sex: Female

DRUGS (3)
  1. EFFEXOR [Suspect]
     Dosage: OVERDOSE AMOUNT: 3500 MG ORAL
     Route: 048
     Dates: start: 20011201, end: 20011201
  2. ZOLPIDEM TARTRATE [Suspect]
     Dosage: OVERDOSE AMOUNT: 140 MG ORAL
     Route: 048
     Dates: start: 20011201, end: 20011201
  3. XANAX [Suspect]
     Dosage: OVERDOSE AMOUNT: 15 MG ORAL
     Route: 048
     Dates: start: 20011201, end: 20011201

REACTIONS (5)
  - BLOOD CREATINE PHOSPHOKINASE INCREASED [None]
  - HYPOTHERMIA [None]
  - MULTIPLE DRUG OVERDOSE [None]
  - MYDRIASIS [None]
  - TACHYCARDIA [None]
